FAERS Safety Report 5939563-3 (Version None)
Quarter: 2008Q4

REPORT INFORMATION
  Report Type: 
  Country: None (occurrence: None)
  Receive Date: 20081030
  Receipt Date: 20081023
  Transmission Date: 20090506
  Serious: Yes (Hospitalization)
  Sender: FDA-Public Use
  Company Number: 100#03#2008-05422

PATIENT
  Age: 54 Year
  Sex: Male

DRUGS (6)
  1. AZITHROMYCIN [Suspect]
     Indication: PROPHYLAXIS
     Dosage: 250 MG ONCE DAILY ORAL
     Route: 048
     Dates: start: 20080701, end: 20080808
  2. CIPROFLOXACIN [Suspect]
     Indication: BRONCHITIS
     Dosage: 500 MG TWICE DAILY ORAL
     Route: 048
     Dates: start: 20080701
  3. CIPROFLOXACIN [Suspect]
     Indication: PROPHYLAXIS
     Dosage: 500 MG TWICE DAILY ORAL
     Route: 048
     Dates: start: 20080701
  4. FLUOXETINE [Concomitant]
  5. SERETIDE (FLUTICASONE, SALMETEROL) [Concomitant]
  6. UNIPHYL [Concomitant]

REACTIONS (3)
  - CHROMATURIA [None]
  - FAECES PALE [None]
  - JAUNDICE [None]
